FAERS Safety Report 14861747 (Version 1)
Quarter: 2018Q2

REPORT INFORMATION
  Report Type: Spontaneous
  Country: US (occurrence: US)
  Receive Date: 20180508
  Receipt Date: 20180508
  Transmission Date: 20180711
  Serious: No
  Sender: FDA-Public Use
  Company Number: US-VIFOR (INTERNATIONAL) INC.-VIT-2017-13172

PATIENT
  Age: 74 Year
  Sex: Female

DRUGS (35)
  1. VELTASSA [Suspect]
     Active Substance: PATIROMER
     Route: 048
  2. RANEXA [Concomitant]
     Active Substance: RANOLAZINE
  3. KIONEX [Concomitant]
     Active Substance: SODIUM POLYSTYRENE SULFONATE
  4. CALCITRATE [Concomitant]
     Active Substance: CALCIUM CITRATE
  5. CYANOCOBALAMIN. [Concomitant]
     Active Substance: CYANOCOBALAMIN
  6. VELTASSA [Suspect]
     Active Substance: PATIROMER
     Route: 048
     Dates: start: 20171116
  7. LEVOTHYROXINE SODIUM. [Concomitant]
     Active Substance: LEVOTHYROXINE SODIUM
  8. GABAPENTIN. [Concomitant]
     Active Substance: GABAPENTIN
  9. CYCLOBENZAPRINE HYDROCHLORIDE. [Concomitant]
     Active Substance: CYCLOBENZAPRINE HYDROCHLORIDE
  10. COLCRYS [Concomitant]
     Active Substance: COLCHICINE
  11. LOTRISONE [Concomitant]
     Active Substance: BETAMETHASONE DIPROPIONATE\CLOTRIMAZOLE
  12. FERAHEME [Concomitant]
     Active Substance: FERUMOXYTOL NON-STOICHIOMETRIC MAGNETITE
  13. MAGNESIUM OXIDE. [Concomitant]
     Active Substance: MAGNESIUM OXIDE
  14. COLECALCIFEROL [Concomitant]
     Active Substance: CHOLECALCIFEROL
  15. TRIAMCINOLONE ACETONIDE. [Concomitant]
     Active Substance: TRIAMCINOLONE ACETONIDE
  16. BUMETANIDE. [Concomitant]
     Active Substance: BUMETANIDE
  17. FENOFIBRATE. [Concomitant]
     Active Substance: FENOFIBRATE
  18. AMOXICILLIN. [Concomitant]
     Active Substance: AMOXICILLIN
  19. KETOCONAZOLE. [Concomitant]
     Active Substance: KETOCONAZOLE
  20. VELTASSA [Suspect]
     Active Substance: PATIROMER
     Indication: HYPERKALAEMIA
     Route: 048
     Dates: start: 20160325
  21. CARVEDILOL. [Concomitant]
     Active Substance: CARVEDILOL
  22. LISINOPRIL. [Concomitant]
     Active Substance: LISINOPRIL
  23. BUSPIRONE HYDROCHLORIDE. [Concomitant]
     Active Substance: BUSPIRONE HYDROCHLORIDE
  24. NORTRIPTYLINE HYDROCHLORIDE. [Concomitant]
     Active Substance: NORTRIPTYLINE HYDROCHLORIDE
  25. ZOCOR [Concomitant]
     Active Substance: SIMVASTATIN
  26. OMEPRAZOLE. [Concomitant]
     Active Substance: OMEPRAZOLE
  27. ALLOPURINOL. [Concomitant]
     Active Substance: ALLOPURINOL
  28. FLUOROURACIL. [Concomitant]
     Active Substance: FLUOROURACIL
  29. NITROSTAT [Concomitant]
     Active Substance: NITROGLYCERIN
  30. NOVOLIN 70/30 [Concomitant]
     Active Substance: INSULIN HUMAN
  31. ENDOCET [Concomitant]
     Active Substance: ACETAMINOPHEN\OXYCODONE HYDROCHLORIDE
  32. ACETYLSALICYLIC ACID [Concomitant]
     Active Substance: ASPIRIN
  33. ISOSORBIDE MONONITRATE. [Concomitant]
     Active Substance: ISOSORBIDE MONONITRATE
  34. CALCIUM CARBONATE. [Concomitant]
     Active Substance: CALCIUM CARBONATE
  35. HYDROXYZINE HYDROCHLORIDE. [Concomitant]
     Active Substance: HYDROXYZINE HYDROCHLORIDE

REACTIONS (3)
  - Constipation [Unknown]
  - Off label use [Unknown]
  - Malaise [Unknown]

NARRATIVE: CASE EVENT DATE: 20171106
